FAERS Safety Report 15566057 (Version 1)
Quarter: 2018Q4

REPORT INFORMATION
  Report Type: Spontaneous
  Country: US (occurrence: US)
  Receive Date: 20181030
  Receipt Date: 20181030
  Transmission Date: 20190205
  Serious: No
  Sender: FDA-Public Use
  Company Number: US-NOVOPROD-567749

PATIENT
  Age: 66 Year
  Sex: Female

DRUGS (2)
  1. VAGIFEM LD [Suspect]
     Active Substance: ESTRADIOL
     Indication: CYSTITIS INTERSTITIAL
  2. VAGIFEM LD [Suspect]
     Active Substance: ESTRADIOL
     Indication: ATROPHIC VULVOVAGINITIS
     Dosage: 1 TAB, TWICE A WEEK
     Route: 067

REACTIONS (2)
  - Cystitis [Recovered/Resolved]
  - Off label use [Not Recovered/Not Resolved]
